FAERS Safety Report 10637206 (Version 1)
Quarter: 2014Q4

REPORT INFORMATION
  Report Type: Spontaneous
  Country: US (occurrence: US)
  Receive Date: 20141208
  Receipt Date: 20141208
  Transmission Date: 20150529
  Serious: Yes (Other)
  Sender: FDA-Public Use
  Company Number: US-JNJFOC-20141118723

PATIENT
  Age: 84 Year
  Sex: Male
  Weight: 72.58 kg

DRUGS (3)
  1. XARELTO [Suspect]
     Active Substance: RIVAROXABAN
     Indication: ATRIAL FIBRILLATION
     Route: 048
     Dates: start: 20141018, end: 20141118
  2. XARELTO [Suspect]
     Active Substance: RIVAROXABAN
     Indication: CEREBROVASCULAR ACCIDENT PROPHYLAXIS
     Route: 048
     Dates: start: 20141018, end: 20141118
  3. LOTREL [Concomitant]
     Active Substance: AMLODIPINE BESYLATE\BENAZEPRIL HYDROCHLORIDE
     Indication: HYPERTENSION
     Dosage: 5/10 MG
     Route: 065

REACTIONS (10)
  - Chills [Recovered/Resolved]
  - Feeling cold [Recovered/Resolved]
  - Abnormal loss of weight [Unknown]
  - International normalised ratio decreased [Unknown]
  - Blood chloride increased [Unknown]
  - Blood cholesterol decreased [Unknown]
  - Tri-iodothyronine uptake increased [Unknown]
  - Body temperature decreased [Not Recovered/Not Resolved]
  - Pruritus [Recovered/Resolved]
  - Rash [Recovered/Resolved]

NARRATIVE: CASE EVENT DATE: 201410
